FAERS Safety Report 11289686 (Version 1)
Quarter: 2015Q3

REPORT INFORMATION
  Report Type: Spontaneous
  Country: JP (occurrence: JP)
  Receive Date: 20150721
  Receipt Date: 20150721
  Transmission Date: 20151125
  Serious: Yes (Hospitalization)
  Sender: FDA-Public Use
  Company Number: JP-BAYER-2015-075659

PATIENT
  Age: 87 Year
  Sex: Male

DRUGS (11)
  1. LANSOPRAZOLE. [Concomitant]
     Active Substance: LANSOPRAZOLE
     Dosage: DAILY DOSE 15 MG
  2. LAC-B [Concomitant]
     Active Substance: BIFIDOBACTERIUM SPP.
     Dosage: DAILY DOSE 2 G
     Route: 048
  3. SOLANAX [Concomitant]
     Active Substance: ALPRAZOLAM
     Dosage: DAILY DOSE .8 MG
     Route: 048
  4. OLMETEC [Concomitant]
     Active Substance: OLMESARTAN MEDOXOMIL
     Dosage: DAILY DOSE 20 MG
     Route: 048
  5. TRANCOLON [Concomitant]
     Active Substance: MEPENZOLATE BROMIDE
     Dosage: DAILY DOSE 2 DF
     Route: 048
  6. NEXAVAR [Suspect]
     Active Substance: SORAFENIB
     Indication: HEPATOCELLULAR CARCINOMA
     Dosage: UNK
     Route: 048
     Dates: start: 201101
  7. COLONEL [Concomitant]
     Active Substance: CALCIUM POLYCARBOPHIL
     Dosage: DAILY DOSE 2 DF
     Route: 048
  8. AMLODIN [Concomitant]
     Active Substance: AMLODIPINE BESYLATE
     Dosage: DAILY DOSE 5 MG
     Route: 048
  9. CEREKINON [Concomitant]
     Active Substance: TRIMEBUTINE
     Dosage: DAILY DOSE 3 DF
     Route: 048
  10. NEUROTROPIN [ORGAN LYSATE, STANDARDIZED] [Concomitant]
     Dosage: DAILY DOSE 4 DF
     Route: 048
     Dates: end: 20150326
  11. URSO [Concomitant]
     Active Substance: URSODIOL
     Dosage: DAILY DOSE 600 MG
     Route: 048

REACTIONS (4)
  - Generalised oedema [None]
  - Oedema peripheral [None]
  - Weight increased [None]
  - Proteinuria [None]

NARRATIVE: CASE EVENT DATE: 20150326
